FAERS Safety Report 8572739-8 (Version None)
Quarter: 2012Q2

REPORT INFORMATION
  Report Type: 
  Country: None (occurrence: None)
  Receive Date: 20120420
  Receipt Date: 20110305
  Transmission Date: 20120825
  Serious: Yes (Other)
  Sender: FDA-Public Use
  Company Number: WAES 1103USA01762

PATIENT
  Sex: Male

DRUGS (5)
  1. SINGULAIR [Suspect]
     Indication: HYPERSENSITIVITY
     Dosage: 10 MG/DAILY/PO
     Route: 048
     Dates: start: 20110218, end: 20110304
  2. ZOCOR [Concomitant]
  3. ENALAPRIL MALEATE [Concomitant]
  4. NOVOLOG [Concomitant]
  5. ZYRTEC [Concomitant]

REACTIONS (4)
  - ANGIOEDEMA [None]
  - PRURITUS [None]
  - RASH [None]
  - URTICARIA [None]
